FAERS Safety Report 11174970 (Version 1)
Quarter: 2015Q2

REPORT INFORMATION
  Report Type: Spontaneous
  Country: US (occurrence: None)
  Receive Date: 20150608
  Receipt Date: 20150608
  Transmission Date: 20150821
  Serious: No
  Sender: FDA-Public Use
  Company Number: None

PATIENT
  Age: 87 Year
  Sex: Female
  Weight: 59.88 kg

DRUGS (8)
  1. OXYBUTYNIN [Suspect]
     Active Substance: OXYBUTYNIN
     Indication: BLADDER DISORDER
     Dosage: 1 PILL
     Route: 048
  2. TOLTERODINE TARTRATE. [Concomitant]
     Active Substance: TOLTERODINE TARTRATE
  3. LOVASTATIN. [Concomitant]
     Active Substance: LOVASTATIN
  4. LEVOTHYROXIN [Concomitant]
     Active Substance: LEVOTHYROXINE
  5. THERMGRAN M PLUS [Concomitant]
  6. WARFARIN [Concomitant]
     Active Substance: WARFARIN
  7. VITAMINS [Concomitant]
     Active Substance: VITAMINS
  8. CALCIUM CITRATE + D3 [Concomitant]

REACTIONS (7)
  - Dry mouth [None]
  - Asthenia [None]
  - Dizziness [None]
  - Constipation [None]
  - Vision blurred [None]
  - Somnolence [None]
  - Abdominal discomfort [None]

NARRATIVE: CASE EVENT DATE: 20150326
